FAERS Safety Report 24017563 (Version 4)
Quarter: 2024Q3

REPORT INFORMATION
  Report Type: Spontaneous
  Country: US (occurrence: US)
  Receive Date: 20240627
  Receipt Date: 20240725
  Transmission Date: 20241017
  Serious: No
  Sender: ROCHE
  Company Number: US-ROCHE-3576585

PATIENT
  Age: 59 Year
  Sex: Female

DRUGS (6)
  1. ACTEMRA [Suspect]
     Active Substance: TOCILIZUMAB
     Indication: Rheumatoid arthritis
     Route: 058
     Dates: start: 202405
  2. PREDNISONE [Concomitant]
     Active Substance: PREDNISONE
     Indication: Rheumatoid arthritis
  3. GLUCOSAMINE [Concomitant]
     Active Substance: GLUCOSAMINE
  4. CHONDROITIN [Concomitant]
     Active Substance: CHONDROITIN
  5. COLLAGEN [Concomitant]
     Active Substance: COLLAGEN
  6. VITAMIN D3 [Concomitant]
     Active Substance: CHOLECALCIFEROL

REACTIONS (5)
  - Device defective [Unknown]
  - Underdose [Unknown]
  - Pain [Unknown]
  - Urticaria [Recovered/Resolved]
  - Discomfort [Unknown]

NARRATIVE: CASE EVENT DATE: 20240601
